FAERS Safety Report 18251654 (Version 3)
Quarter: 2021Q2

REPORT INFORMATION
  Report Type: Spontaneous
  Country: US (occurrence: US)
  Receive Date: 20200910
  Receipt Date: 20210407
  Transmission Date: 20210717
  Serious: Yes (Other)
  Sender: FDA-Public Use
  Company Number: US-ASTRAZENECA-2020SF12680

PATIENT
  Age: 54 Year
  Sex: Female
  Weight: 51.7 kg

DRUGS (81)
  1. PREVACID [Suspect]
     Active Substance: LANSOPRAZOLE
     Indication: GASTROOESOPHAGEAL REFLUX DISEASE
     Route: 065
     Dates: start: 2004, end: 2018
  2. ESCITALOPRAM [Concomitant]
     Active Substance: ESCITALOPRAM OXALATE
  3. PREDNISONE. [Concomitant]
     Active Substance: PREDNISONE
  4. RISPERDAL [Concomitant]
     Active Substance: RISPERIDONE
  5. TRADJENTA [Concomitant]
     Active Substance: LINAGLIPTIN
  6. CETIRIZINE [Concomitant]
     Active Substance: CETIRIZINE HYDROCHLORIDE
  7. TRAMADOL. [Concomitant]
     Active Substance: TRAMADOL
  8. PROMETHAZINE [Concomitant]
     Active Substance: PROMETHAZINE HYDROCHLORIDE
  9. GABAPENTIN. [Concomitant]
     Active Substance: GABAPENTIN
  10. MONTELUKAST [Concomitant]
     Active Substance: MONTELUKAST SODIUM
  11. RANITIDINE. [Concomitant]
     Active Substance: RANITIDINE
  12. CHLORHEXIDINE [Concomitant]
     Active Substance: CHLORHEXIDINE
  13. LIDOCAINE HYDROCHLORIDE. [Concomitant]
     Active Substance: LIDOCAINE HYDROCHLORIDE
  14. MONTELUKAST SODIUM. [Concomitant]
     Active Substance: MONTELUKAST SODIUM
  15. MORPHINE SULFATE. [Concomitant]
     Active Substance: MORPHINE SULFATE
  16. LOVENOX [Concomitant]
     Active Substance: ENOXAPARIN SODIUM
  17. PRILOSEC [Suspect]
     Active Substance: OMEPRAZOLE MAGNESIUM
     Indication: GASTROOESOPHAGEAL REFLUX DISEASE
     Route: 048
     Dates: start: 20180609
  18. NAMENDA [Concomitant]
     Active Substance: MEMANTINE HYDROCHLORIDE
  19. VITAMIN D3 [Concomitant]
     Active Substance: CHOLECALCIFEROL
  20. CARVEDILOL. [Concomitant]
     Active Substance: CARVEDILOL
  21. TIZANIDINE. [Concomitant]
     Active Substance: TIZANIDINE
  22. CLONIDINE. [Concomitant]
     Active Substance: CLONIDINE
  23. FENTANYL. [Concomitant]
     Active Substance: FENTANYL
  24. DEXAMETHASONE. [Concomitant]
     Active Substance: DEXAMETHASONE
  25. ANCEF [Concomitant]
     Active Substance: CEFAZOLIN SODIUM
  26. LIDOCAINE. [Concomitant]
     Active Substance: LIDOCAINE
  27. TRELEGY ELLIPTA [Concomitant]
     Active Substance: FLUTICASONE FUROATE\UMECLIDINIUM BROMIDE\VILANTEROL TRIFENATATE
  28. ASPIRIN. [Concomitant]
     Active Substance: ASPIRIN
     Indication: PAIN
     Dosage: DAILY
  29. VITAMIN D [Concomitant]
     Active Substance: VITAMIN D NOS
     Indication: HYPOVITAMINOSIS
     Dosage: DAILY
  30. CLOPIDOGREL [Concomitant]
     Active Substance: CLOPIDOGREL BISULFATE
  31. LASIX [Concomitant]
     Active Substance: FUROSEMIDE
  32. SODIUM BICARBONATE. [Concomitant]
     Active Substance: SODIUM BICARBONATE
  33. IPRATROPIUM BROMIDE. [Concomitant]
     Active Substance: IPRATROPIUM BROMIDE
  34. OXYBUTYNIN CHLORIDE. [Concomitant]
     Active Substance: OXYBUTYNIN CHLORIDE
  35. PRILOSEC [Suspect]
     Active Substance: OMEPRAZOLE MAGNESIUM
     Indication: GASTROOESOPHAGEAL REFLUX DISEASE
     Dosage: GENERIC
     Route: 065
     Dates: start: 2019
  36. HYDROCODONE [Concomitant]
     Active Substance: HYDROCODONE
  37. FLONASE [Concomitant]
     Active Substance: FLUTICASONE PROPIONATE
  38. AMLODIPINE [Concomitant]
     Active Substance: AMLODIPINE BESYLATE
  39. ROSUVASTATIN. [Concomitant]
     Active Substance: ROSUVASTATIN
  40. VERSED [Concomitant]
     Active Substance: MIDAZOLAM HYDROCHLORIDE
  41. HYDROMORPHONE [Concomitant]
     Active Substance: HYDROMORPHONE
  42. HYDRALAZINE HYDROCHLORIDE. [Concomitant]
     Active Substance: HYDRALAZINE HYDROCHLORIDE
  43. COZAAR [Concomitant]
     Active Substance: LOSARTAN POTASSIUM
  44. ZANAFLEX [Concomitant]
     Active Substance: TIZANIDINE HYDROCHLORIDE
  45. FAMOTIDINE. [Concomitant]
     Active Substance: FAMOTIDINE
     Dates: start: 2019
  46. HYDRALAZINE [Concomitant]
     Active Substance: HYDRALAZINE HYDROCHLORIDE
  47. ABILIFY [Concomitant]
     Active Substance: ARIPIPRAZOLE
  48. ADVAIR DISKUS [Concomitant]
     Active Substance: FLUTICASONE PROPIONATE\SALMETEROL XINAFOATE
  49. LOMOTIL [Concomitant]
     Active Substance: ATROPINE SULFATE\DIPHENOXYLATE HYDROCHLORIDE
  50. PRAVACHOL [Concomitant]
     Active Substance: PRAVASTATIN SODIUM
  51. PROAIR HFA [Concomitant]
     Active Substance: ALBUTEROL SULFATE
  52. OPTIVE [Concomitant]
     Active Substance: CARBOXYMETHYLCELLULOSE SODIUM\GLYCERIN
  53. BUPROPION. [Concomitant]
     Active Substance: BUPROPION
  54. HYDROCODONE?ACETAMINOPHEN [Concomitant]
     Active Substance: ACETAMINOPHEN\HYDROCODONE
  55. OXYBUTYNIN. [Concomitant]
     Active Substance: OXYBUTYNIN CHLORIDE
  56. NIFEDIPINE. [Concomitant]
     Active Substance: NIFEDIPINE
  57. TRIMETHOPRIM. [Concomitant]
     Active Substance: TRIMETHOPRIM
  58. MAGNESIUM OXIDE. [Concomitant]
     Active Substance: MAGNESIUM OXIDE
  59. LYRICA [Concomitant]
     Active Substance: PREGABALIN
  60. PRILOSEC [Suspect]
     Active Substance: OMEPRAZOLE MAGNESIUM
     Indication: GASTROOESOPHAGEAL REFLUX DISEASE
     Route: 048
     Dates: start: 200401, end: 201812
  61. PREVACID [Suspect]
     Active Substance: LANSOPRAZOLE
     Indication: GASTROOESOPHAGEAL REFLUX DISEASE
     Route: 065
     Dates: start: 200401, end: 201812
  62. KLOR?CON [Concomitant]
     Active Substance: POTASSIUM CHLORIDE
  63. ZOLPIDEM [Concomitant]
     Active Substance: ZOLPIDEM TARTRATE
  64. HUMULIN NOS [Concomitant]
     Active Substance: INSULIN HUMAN
  65. ULTRAM [Concomitant]
     Active Substance: TRAMADOL HYDROCHLORIDE
  66. NEXIUM [Suspect]
     Active Substance: ESOMEPRAZOLE MAGNESIUM
     Indication: GASTROOESOPHAGEAL REFLUX DISEASE
     Route: 048
     Dates: start: 200401, end: 201812
  67. PLAVIX [Concomitant]
     Active Substance: CLOPIDOGREL BISULFATE
     Indication: ANTICOAGULANT THERAPY
     Dates: start: 2018
  68. LEXAPRO [Concomitant]
     Active Substance: ESCITALOPRAM OXALATE
  69. ROPINIROLE. [Concomitant]
     Active Substance: ROPINIROLE
  70. CLONIDINE HYDROCHLORIDE. [Concomitant]
     Active Substance: CLONIDINE HYDROCHLORIDE
  71. DEXTROSE. [Concomitant]
     Active Substance: DEXTROSE
  72. PULMICORT TURBUHALER [Concomitant]
     Active Substance: BUDESONIDE
  73. NEXIUM [Suspect]
     Active Substance: ESOMEPRAZOLE MAGNESIUM
     Indication: GASTROOESOPHAGEAL REFLUX DISEASE
     Route: 048
     Dates: start: 2004, end: 2018
  74. PRILOSEC [Suspect]
     Active Substance: OMEPRAZOLE MAGNESIUM
     Indication: GASTROOESOPHAGEAL REFLUX DISEASE
     Route: 048
     Dates: start: 2004, end: 2018
  75. DIAZEPAM. [Concomitant]
     Active Substance: DIAZEPAM
  76. LEVOFLOXACIN. [Concomitant]
     Active Substance: LEVOFLOXACIN
  77. BUPROPION HYDROCHLORIDE. [Concomitant]
     Active Substance: BUPROPION HYDROCHLORIDE
  78. LOSARTAN. [Concomitant]
     Active Substance: LOSARTAN
  79. SODIUM CHLORIDE. [Concomitant]
     Active Substance: SODIUM CHLORIDE
  80. MEGESTROL [Concomitant]
     Active Substance: MEGESTROL
  81. OMNIPAQUE [Concomitant]
     Active Substance: IOHEXOL

REACTIONS (4)
  - Renal failure [Unknown]
  - Chronic kidney disease [Not Recovered/Not Resolved]
  - Renal tubular necrosis [Unknown]
  - Acute kidney injury [Not Recovered/Not Resolved]

NARRATIVE: CASE EVENT DATE: 2007
